FAERS Safety Report 24769393 (Version 1)
Quarter: 2024Q4

REPORT INFORMATION
  Report Type: Spontaneous
  Country: IT (occurrence: IT)
  Receive Date: 20241224
  Receipt Date: 20241224
  Transmission Date: 20250114
  Serious: Yes (Other)
  Sender: HIKMA
  Company Number: IT-HIKMA PHARMACEUTICALS-IT-H14001-24-11705

PATIENT
  Age: 65 Year
  Sex: Male
  Weight: 62 kg

DRUGS (1)
  1. VANCOMYCIN HYDROCHLORIDE [Suspect]
     Active Substance: VANCOMYCIN HYDROCHLORIDE
     Indication: Cholangitis
     Dosage: 1 GRAM
     Route: 042
     Dates: start: 20241119, end: 20241119

REACTIONS (2)
  - Urticaria [Recovered/Resolved]
  - Laryngeal oedema [Recovered/Resolved]

NARRATIVE: CASE EVENT DATE: 20241119
